FAERS Safety Report 12810564 (Version 2)
Quarter: 2017Q1

REPORT INFORMATION
  Report Type: Spontaneous
  Country: FR (occurrence: FR)
  Receive Date: 20161004
  Receipt Date: 20170314
  Transmission Date: 20170428
  Serious: Yes (Hospitalization)
  Sender: FDA-Public Use
  Company Number: FR-ALSI-201600255

PATIENT
  Age: 54 Year
  Sex: Male

DRUGS (1)
  1. MEDICAL OXYGEN [Suspect]
     Active Substance: OXYGEN
     Indication: PRODUCT USED FOR UNKNOWN INDICATION
     Route: 055
     Dates: start: 20160921

REACTIONS (3)
  - Product quality issue [None]
  - Oxygen saturation decreased [None]
  - Accidental underdose [None]
